FAERS Safety Report 14628549 (Version 3)
Quarter: 2018Q2

REPORT INFORMATION
  Report Type: Report from Study
  Country: None (occurrence: US)
  Receive Date: 20180313
  Receipt Date: 20180412
  Transmission Date: 20180711
  Serious: Yes (Hospitalization, Other)
  Sender: FDA-Public Use
  Company Number: US-ABBVIE-18K-163-2280749-00

PATIENT
  Age: 58 Year
  Sex: Male
  Weight: 118.04 kg

DRUGS (1)
  1. HUMIRA [Suspect]
     Active Substance: ADALIMUMAB
     Indication: PSORIASIS
     Route: 058
     Dates: start: 201411

REACTIONS (8)
  - Aortic dissection [Recovered/Resolved]
  - Asthenia [Recovering/Resolving]
  - Atrial fibrillation [Recovered/Resolved]
  - Back pain [Unknown]
  - Blood pressure increased [Recovering/Resolving]
  - Chest pain [Recovering/Resolving]
  - Retinal tear [Recovering/Resolving]
  - Dyspepsia [Unknown]

NARRATIVE: CASE EVENT DATE: 2018
